FAERS Safety Report 8541500-2 (Version None)
Quarter: 2012Q3

REPORT INFORMATION
  Report Type: 
  Country: None (occurrence: None)
  Receive Date: 20120726
  Receipt Date: 20120718
  Transmission Date: 20120928
  Serious: No
  Sender: FDA-Public Use
  Company Number: US-UCBSA-058116

PATIENT
  Age: 28 Year
  Sex: Female

DRUGS (4)
  1. KEPPRA [Suspect]
     Indication: EPILEPSY
  2. LEVETIRACETAM [Concomitant]
     Indication: EPILEPSY
  3. FOLIC ACID [Concomitant]
     Route: 048
     Dates: start: 20110901
  4. MULTI-VITAMINS [Concomitant]
     Indication: PREGNANCY
     Dosage: 1 TABLET DAILY
     Route: 048
     Dates: start: 20110901

REACTIONS (2)
  - ANAEMIA [None]
  - PREGNANCY [None]
